FAERS Safety Report 19615321 (Version 2)
Quarter: 2021Q3

REPORT INFORMATION
  Report Type: Report from Study
  Country: US (occurrence: US)
  Receive Date: 20210727
  Receipt Date: 20210907
  Transmission Date: 20211014
  Serious: Yes (Death)
  Sender: FDA-Public Use
  Company Number: US-ADAMAS PHARMA, LLC-2021ADA01714

PATIENT
  Age: 68 Year
  Sex: Male

DRUGS (10)
  1. APOKYN [Concomitant]
     Active Substance: APOMORPHINE HYDROCHLORIDE
  2. LISINOPRIL. [Concomitant]
     Active Substance: LISINOPRIL
  3. MELOXICAM. [Concomitant]
     Active Substance: MELOXICAM
  4. TRAMADOL HCL [Concomitant]
     Active Substance: TRAMADOL HYDROCHLORIDE
  5. GOCOVRI [Suspect]
     Active Substance: AMANTADINE
     Indication: DYSKINESIA
     Dosage: 274 MG, 1X/DAY ONCE DAILY AT BEDTIME
     Route: 048
     Dates: start: 20180411, end: 20210520
  6. ASPIRIN LOW EC [Concomitant]
  7. RYTARY [Concomitant]
     Active Substance: CARBIDOPA\LEVODOPA
  8. GABAPENTIN. [Concomitant]
     Active Substance: GABAPENTIN
  9. PRAVASTATIN. [Concomitant]
     Active Substance: PRAVASTATIN
  10. CARBIDOPA/LEVODOPA [Concomitant]
     Active Substance: CARBIDOPA\LEVODOPA

REACTIONS (2)
  - Chronic obstructive pulmonary disease [Fatal]
  - Unevaluable event [Fatal]

NARRATIVE: CASE EVENT DATE: 20210520
